FAERS Safety Report 18403362 (Version 1)
Quarter: 2020Q4

REPORT INFORMATION
  Report Type: Spontaneous
  Country: JP (occurrence: JP)
  Receive Date: 20201020
  Receipt Date: 20201020
  Transmission Date: 20210114
  Serious: Yes (Other)
  Sender: FDA-Public Use
  Company Number: JP-PBT-000410

PATIENT
  Age: 68 Year

DRUGS (2)
  1. TACROLIMUS. [Suspect]
     Active Substance: TACROLIMUS
     Indication: PRODUCT USED FOR UNKNOWN INDICATION
     Route: 065
  2. METHOTREXATE. [Suspect]
     Active Substance: METHOTREXATE
     Indication: PRODUCT USED FOR UNKNOWN INDICATION
     Route: 065

REACTIONS (7)
  - Pyrexia [Recovering/Resolving]
  - Lymphoma [Recovering/Resolving]
  - Epstein-Barr virus infection reactivation [Unknown]
  - Cytopenia [Recovering/Resolving]
  - Haemophagocytic lymphohistiocytosis [Unknown]
  - Diffuse large B-cell lymphoma [Recovering/Resolving]
  - Hyperferritinaemia [Unknown]
